FAERS Safety Report 5033234-6 (Version None)
Quarter: 2006Q2

REPORT INFORMATION
  Report Type: 
  Country: None (occurrence: None)
  Receive Date: 20060620
  Receipt Date: 20060606
  Transmission Date: 20061013
  Serious: Yes (Hospitalization)
  Sender: FDA-Public Use
  Company Number: 2006-143712-NL

PATIENT
  Age: 32 Year
  Sex: Female

DRUGS (6)
  1. MIRTAZAPINE [Suspect]
     Indication: SCHIZOPHRENIA
     Dosage: 30 MG
     Route: 048
     Dates: start: 20060101, end: 20060505
  2. PAROXETINE HYDROCHLORIDE [Suspect]
     Indication: SCHIZOPHRENIA
     Dosage: 20 MG
     Route: 048
     Dates: start: 20060101, end: 20060505
  3. OLANZAPINE [Concomitant]
  4. ESOMEPRAZOLE MAGNESIUM [Concomitant]
  5. LEVOMEPROMAZINE [Concomitant]
  6. DIAZEPAM [Concomitant]

REACTIONS (8)
  - BLOOD OSMOLARITY DECREASED [None]
  - HYPOKALAEMIA [None]
  - HYPONATRAEMIA [None]
  - HYPOTENSION [None]
  - MALAISE [None]
  - RESTLESSNESS [None]
  - STATUS EPILEPTICUS [None]
  - VOMITING [None]
